FAERS Safety Report 25496269 (Version 1)
Quarter: 2025Q2

REPORT INFORMATION
  Report Type: Spontaneous
  Country: TW (occurrence: TW)
  Receive Date: 20250630
  Receipt Date: 20250630
  Transmission Date: 20250716
  Serious: Yes (Other)
  Sender: NOVARTIS
  Company Number: TW-002147023-NVSC2025TW100102

PATIENT
  Sex: Female

DRUGS (1)
  1. JADENU [Suspect]
     Active Substance: DEFERASIROX
     Indication: Product used for unknown indication
     Route: 065

REACTIONS (7)
  - Paroxysmal nocturnal haemoglobinuria [Unknown]
  - Diabetes mellitus [Unknown]
  - Haemolytic anaemia [Unknown]
  - Fatigue [Unknown]
  - Laboratory test abnormal [Unknown]
  - Iron overload [Unknown]
  - Dyspnoea exertional [Unknown]
